FAERS Safety Report 10016047 (Version 1)
Quarter: 2014Q1

REPORT INFORMATION
  Report Type: Spontaneous
  Country: US (occurrence: US)
  Receive Date: 20140317
  Receipt Date: 20140317
  Transmission Date: 20141002
  Serious: Yes (Other)
  Sender: FDA-Public Use
  Company Number: US-BAYER-2014-037770

PATIENT
  Age: 44 Year
  Sex: Male

DRUGS (1)
  1. BETASERON [Suspect]
     Dosage: 0.3 MG, QOD
     Route: 058
     Dates: start: 20130314

REACTIONS (2)
  - Muscular weakness [None]
  - Paraesthesia [None]
